FAERS Safety Report 7430231-8 (Version None)
Quarter: 2011Q2

REPORT INFORMATION
  Report Type: 
  Country: None (occurrence: None)
  Receive Date: 20110421
  Receipt Date: 20100827
  Transmission Date: 20111010
  Serious: No
  Sender: FDA-Public Use
  Company Number: US-ASTRAZENECA-2010SE40530

PATIENT
  Age: 62 Year
  Sex: Female

DRUGS (2)
  1. TOPROL-XL [Suspect]
     Indication: HYPERTENSION
     Route: 048
     Dates: start: 20100817
  2. TOPROL-XL [Suspect]
     Route: 048
     Dates: start: 20100822

REACTIONS (5)
  - NAUSEA [None]
  - ABDOMINAL DISCOMFORT [None]
  - DECREASED APPETITE [None]
  - FEELING ABNORMAL [None]
  - DIZZINESS [None]
